FAERS Safety Report 6853682-9 (Version None)
Quarter: 2010Q3

REPORT INFORMATION
  Report Type: 
  Country: None (occurrence: None)
  Receive Date: 20100717
  Receipt Date: 20071214
  Transmission Date: 20110219
  Serious: No
  Sender: FDA-Public Use
  Company Number: US-PFIZER INC-2007106653

PATIENT
  Sex: Female
  Weight: 76.363 kg

DRUGS (7)
  1. CHANTIX [Suspect]
     Indication: SMOKING CESSATION THERAPY
     Dates: start: 20071201
  2. NEXIUM [Concomitant]
  3. TRAMADOL [Concomitant]
     Indication: PAIN
  4. ZOMIG [Concomitant]
  5. LORAZEPAM [Concomitant]
  6. ALL OTHER THERAPEUTIC PRODUCTS [Concomitant]
  7. NEXIUM [Concomitant]

REACTIONS (3)
  - ABNORMAL DREAMS [None]
  - FLATULENCE [None]
  - NAUSEA [None]
